FAERS Safety Report 14804210 (Version 1)
Quarter: 2018Q2

REPORT INFORMATION
  Report Type: Spontaneous
  Country: GB (occurrence: GB)
  Receive Date: 20180425
  Receipt Date: 20180425
  Transmission Date: 20180711
  Serious: Yes (Hospitalization, Other)
  Sender: FDA-Public Use
  Company Number: GB-CONCORDIA PHARMACEUTICALS INC.-GSH201804-001386

PATIENT
  Age: 31 Year
  Sex: Female

DRUGS (19)
  1. MYCOPHENOLATE MOFETIL. [Suspect]
     Active Substance: MYCOPHENOLATE MOFETIL
     Indication: LUPUS NEPHRITIS
     Route: 065
  2. MYCOPHENOLATE MOFETIL. [Suspect]
     Active Substance: MYCOPHENOLATE MOFETIL
     Indication: LUPUS MYOCARDITIS
  3. AZATHIOPRINE. [Suspect]
     Active Substance: AZATHIOPRINE
     Indication: LUPUS NEPHRITIS
     Route: 065
  4. AZATHIOPRINE. [Suspect]
     Active Substance: AZATHIOPRINE
     Indication: LUPUS MYOCARDITIS
  5. BISOPROLOL [Concomitant]
     Active Substance: BISOPROLOL
     Indication: TUBERCULOSIS
  6. CYCLOPHOSPHAMIDE. [Suspect]
     Active Substance: CYCLOPHOSPHAMIDE
     Indication: SYSTEMIC LUPUS ERYTHEMATOSUS
     Route: 065
  7. ISOSORBIDE MONONITRATE. [Concomitant]
     Active Substance: ISOSORBIDE MONONITRATE
     Indication: TUBERCULOSIS
  8. CYCLOPHOSPHAMIDE. [Suspect]
     Active Substance: CYCLOPHOSPHAMIDE
     Route: 042
  9. HYDROXYCHLOROQUINE [Suspect]
     Active Substance: HYDROXYCHLOROQUINE
     Indication: SYSTEMIC LUPUS ERYTHEMATOSUS
     Route: 065
  10. METHYLPREDNISOLONE. [Suspect]
     Active Substance: METHYLPREDNISOLONE
     Indication: SYSTEMIC LUPUS ERYTHEMATOSUS
     Route: 042
  11. IVABRADINE [Concomitant]
     Active Substance: IVABRADINE
     Indication: TUBERCULOSIS
  12. SPIRONOLACTONE. [Concomitant]
     Active Substance: SPIRONOLACTONE
     Indication: TUBERCULOSIS
  13. METHYLPREDNISOLONE. [Suspect]
     Active Substance: METHYLPREDNISOLONE
     Route: 042
  14. ISONIAZID. [Suspect]
     Active Substance: ISONIAZID
     Indication: TUBERCULOSIS OF CENTRAL NERVOUS SYSTEM
     Route: 065
  15. AMIKACIN SULFATE. [Suspect]
     Active Substance: AMIKACIN SULFATE
     Indication: TUBERCULOSIS OF CENTRAL NERVOUS SYSTEM
     Route: 065
  16. RITUXIMAB. [Concomitant]
     Active Substance: RITUXIMAB
     Indication: TUBERCULOSIS
  17. RIFAMPICIN [Suspect]
     Active Substance: RIFAMPIN
     Indication: TUBERCULOSIS OF CENTRAL NERVOUS SYSTEM
     Route: 042
  18. FUROSEMIDE. [Concomitant]
     Active Substance: FUROSEMIDE
     Indication: TUBERCULOSIS
     Dosage: 120/80 MG BD
  19. GLYCERYL TRINITRATE [Concomitant]
     Active Substance: NITROGLYCERIN
     Indication: TUBERCULOSIS

REACTIONS (32)
  - Night sweats [Unknown]
  - Lymphadenopathy [Unknown]
  - Diplopia [Unknown]
  - Off label use [Unknown]
  - Pyrexia [Unknown]
  - Agitation [Unknown]
  - Somnolence [Unknown]
  - Cachexia [Unknown]
  - Ophthalmoplegia [Unknown]
  - Productive cough [Unknown]
  - Drug ineffective [Unknown]
  - Product use issue [Unknown]
  - Tuberculosis of central nervous system [Recovered/Resolved]
  - Tuberculosis [Recovered/Resolved]
  - Sputum discoloured [Unknown]
  - Confusional state [Unknown]
  - Granuloma [Unknown]
  - Mycobacterium tuberculosis complex test positive [Unknown]
  - Pleural effusion [Unknown]
  - Dizziness [Unknown]
  - Memory impairment [Unknown]
  - Meningitis [Unknown]
  - Nausea [Unknown]
  - Weight decreased [Unknown]
  - Pulmonary tuberculosis [Recovered/Resolved]
  - Dyspnoea [Unknown]
  - Vision blurred [Unknown]
  - Headache [Unknown]
  - Hydrocephalus [Recovered/Resolved]
  - Consciousness fluctuating [Unknown]
  - Vomiting [Unknown]
  - Eyelid ptosis [Unknown]
